FAERS Safety Report 5143053-8 (Version None)
Quarter: 2006Q4

REPORT INFORMATION
  Report Type: 
  Country: None (occurrence: None)
  Receive Date: 20061103
  Receipt Date: 20061030
  Transmission Date: 20070319
  Serious: Yes (Disabling, Other)
  Sender: FDA-Public Use
  Company Number: JP-SP-2006-02883

PATIENT
  Age: 68 Year
  Sex: Male

DRUGS (1)
  1. IMMUCYST [Suspect]
     Indication: BLADDER CANCER
     Route: 043

REACTIONS (3)
  - PAIN [None]
  - PROSTATE CANCER [None]
  - PYREXIA [None]
